FAERS Safety Report 6147714-3 (Version None)
Quarter: 2009Q2

REPORT INFORMATION
  Report Type: 
  Country: None (occurrence: None)
  Receive Date: 20090408
  Receipt Date: 20090331
  Transmission Date: 20091009
  Serious: Yes (Other)
  Sender: FDA-Public Use
  Company Number: US-NOVOPROD-280055

PATIENT
  Age: 42 Year
  Sex: Female
  Weight: 60.771 kg

DRUGS (3)
  1. NOVOLOG [Suspect]
     Indication: TYPE 1 DIABETES MELLITUS
     Dosage: 24 IU, QD (Q 4 HOURS)
     Route: 058
     Dates: start: 20010101, end: 20090303
  2. LANTUS [Suspect]
     Indication: TYPE 1 DIABETES MELLITUS
     Dosage: 8 IU, QD
     Route: 058
     Dates: start: 20010101
  3. SYMLIN [Suspect]
     Indication: TYPE 1 DIABETES MELLITUS
     Dosage: UNKNOWN
     Dates: start: 20010101

REACTIONS (4)
  - ALLERGY TO CHEMICALS [None]
  - CONFUSIONAL STATE [None]
  - HALLUCINATION [None]
  - HYPOAESTHESIA FACIAL [None]
